FAERS Safety Report 5990447-4 (Version None)
Quarter: 2008Q4

REPORT INFORMATION
  Report Type: 
  Country: None (occurrence: None)
  Receive Date: 20081211
  Receipt Date: 20081201
  Transmission Date: 20090506
  Serious: Yes (Death)
  Sender: FDA-Public Use
  Company Number: IT-PFIZER INC-2008101274

PATIENT

DRUGS (18)
  1. BLINDED *PLACEBO [Suspect]
     Dosage: UNK
  2. BLINDED ANIDULAFUNGIN [Suspect]
     Dosage: UNK
  3. VORICONAZOLE [Suspect]
     Route: 042
     Dates: start: 20081127, end: 20081129
  4. ATENOLOL [Concomitant]
     Route: 048
  5. OMEPRAZOLE [Concomitant]
     Route: 042
     Dates: start: 20081118
  6. CASPOFUNGIN [Concomitant]
     Route: 042
     Dates: start: 20081121, end: 20081123
  7. FUROSEMIDE [Concomitant]
     Route: 042
     Dates: start: 20081118
  8. SEACOR [Concomitant]
     Route: 048
  9. UGUROL [Concomitant]
     Route: 048
     Dates: start: 20081112
  10. FOLINA [Concomitant]
     Route: 048
     Dates: end: 20081122
  11. PYRIDOXINE HYDROCHLORIDE [Concomitant]
     Route: 048
     Dates: end: 20081122
  12. TAZOCIN [Concomitant]
     Route: 042
     Dates: start: 20081118, end: 20081121
  13. AMIKACIN [Concomitant]
     Route: 042
     Dates: start: 20081118, end: 20081124
  14. MEROPENEM [Concomitant]
     Route: 042
     Dates: start: 20081122
  15. KONAKION [Concomitant]
     Route: 042
     Dates: start: 20081122
  16. TARGOCID [Concomitant]
     Route: 042
     Dates: start: 20081124
  17. ENTEROGERMINA [Concomitant]
     Route: 048
     Dates: start: 20081128
  18. ALL OTHER THERAPEUTIC PRODUCTS [Concomitant]
     Dosage: UNK
     Dates: end: 20081127

REACTIONS (2)
  - ACUTE RESPIRATORY DISTRESS SYNDROME [None]
  - ARRHYTHMIA [None]
